FAERS Safety Report 11121845 (Version 1)
Quarter: 2015Q2

REPORT INFORMATION
  Report Type: Spontaneous
  Country: US (occurrence: None)
  Receive Date: 20150518
  Receipt Date: 20150518
  Transmission Date: 20150821
  Serious: No
  Sender: FDA-Public Use
  Company Number: None

PATIENT
  Age: 60 Year
  Sex: Female

DRUGS (9)
  1. PERCOSET 10-325 [Concomitant]
  2. ALENDRONATE 70 MG [Suspect]
     Active Substance: ALENDRONATE SODIUM
     Indication: OSTEOPOROSIS
     Route: 048
     Dates: start: 20150422, end: 20150429
  3. NORVASC [Concomitant]
     Active Substance: AMLODIPINE BESYLATE
  4. CALCIUM + VIT.D SUPP [Concomitant]
  5. CLONOPIN [Concomitant]
     Active Substance: CLONAZEPAM
  6. ZOFRAN [Concomitant]
     Active Substance: ONDANSETRON HYDROCHLORIDE
  7. MELATONIN [Concomitant]
     Active Substance: MELATONIN
  8. MSCONTIN [Concomitant]
  9. MULTI-VITAMINS [Concomitant]

REACTIONS (2)
  - Nausea [None]
  - Feeding disorder [None]

NARRATIVE: CASE EVENT DATE: 20150422
